FAERS Safety Report 10992433 (Version 4)
Quarter: 2015Q3

REPORT INFORMATION
  Report Type: Spontaneous
  Country: US (occurrence: US)
  Receive Date: 20150406
  Receipt Date: 20150731
  Transmission Date: 20151125
  Serious: Yes (Other)
  Sender: FDA-Public Use
  Company Number: US-GILEAD-2015-0138721

PATIENT
  Age: 54 Year
  Sex: Male

DRUGS (10)
  1. ENFUVIRTIDE [Concomitant]
     Active Substance: ENFUVIRTIDE
  2. TENOFOVIR DISOPROXIL FUMARATE. [Suspect]
     Active Substance: TENOFOVIR DISOPROXIL FUMARATE
     Indication: HIV INFECTION
     Route: 065
  3. RITONAVIR. [Concomitant]
     Active Substance: RITONAVIR
  4. DDC [Concomitant]
  5. DARUNAVIR [Concomitant]
     Active Substance: DARUNAVIR
  6. TENOFOVIR DISOPROXIL FUMARATE. [Suspect]
     Active Substance: TENOFOVIR DISOPROXIL FUMARATE
     Indication: HEPATITIS B
  7. TIPRANAVIR [Concomitant]
     Active Substance: TIPRANAVIR
  8. ETRAVIRINE [Concomitant]
     Active Substance: ETRAVIRINE
  9. RALTEGRAVIR. [Concomitant]
     Active Substance: RALTEGRAVIR
  10. ENTECAVIR. [Concomitant]
     Active Substance: ENTECAVIR

REACTIONS (4)
  - Hepatitis B DNA increased [Unknown]
  - Drug ineffective [Unknown]
  - Drug resistance [Unknown]
  - Treatment noncompliance [Unknown]
